FAERS Safety Report 5320748-4 (Version None)
Quarter: 2007Q2

REPORT INFORMATION
  Report Type: 
  Country: None (occurrence: None)
  Receive Date: 20070509
  Receipt Date: 20070425
  Transmission Date: 20071010
  Serious: Yes (Hospitalization, Other)
  Sender: FDA-Public Use
  Company Number: DE-SHR-DE-2007-014691

PATIENT
  Age: 59 Year
  Sex: Male
  Weight: 64 kg

DRUGS (8)
  1. FLUDARABINE PHOSPHATE [Suspect]
     Dosage: 44 MG, D1-3, EVERY 4 WEEKS
     Route: 042
     Dates: start: 20060117
  2. CYCLOPHOSPHAMIDE [Suspect]
     Dosage: 442 MG, D1-3, EVERY 4 WEEKS
     Route: 042
     Dates: start: 20060117
  3. DOXEPIN HCL [Concomitant]
     Dosage: 10 MG, UNK
     Dates: start: 20051130
  4. ALLO [Concomitant]
     Dosage: 300 MG, UNK
     Dates: start: 20060117, end: 20060209
  5. COTRIM [Concomitant]
     Dosage: 1920 MG, 3X/WEEK
     Dates: start: 20060117, end: 20060209
  6. RIFUN [Concomitant]
     Dosage: 20 MG, UNK
     Dates: start: 20060117
  7. METOCLOPRAMIDE [Concomitant]
     Dosage: 10 MG, UNK
     Dates: start: 20060117, end: 20060209
  8. DICLOFENAC [Concomitant]
     Indication: GOUTY ARTHRITIS
     Dosage: 75 MG, UNK
     Dates: start: 20060209

REACTIONS (1)
  - LEUKOCYTOCLASTIC VASCULITIS [None]
